FAERS Safety Report 4348532-9 (Version None)
Quarter: 2004Q2

REPORT INFORMATION
  Report Type: 
  Country: None (occurrence: None)
  Receive Date: 20040427
  Receipt Date: 20040416
  Transmission Date: 20050107
  Serious: Yes (Life-Threatening)
  Sender: FDA-Public Use
  Company Number: IT-ROCHE-364697

PATIENT
  Age: 64 Year
  Sex: Male

DRUGS (4)
  1. ROCEPHIN [Suspect]
     Indication: PROPHYLAXIS
     Dosage: FORMULATION: VIAL.
     Route: 042
     Dates: start: 20040309, end: 20040314
  2. ANTRA [Concomitant]
  3. DANZEN [Concomitant]
     Route: 048
  4. BENTELAN [Concomitant]
     Dosage: FORMULATION: VIALS.
     Route: 042

REACTIONS (4)
  - HAEMATOMA [None]
  - PETECHIAE [None]
  - PURPURA [None]
  - THROMBOCYTOPENIA [None]
